FAERS Safety Report 16905823 (Version 1)
Quarter: 2019Q4

REPORT INFORMATION
  Report Type: Spontaneous
  Country: US (occurrence: US)
  Receive Date: 20191010
  Receipt Date: 20191010
  Transmission Date: 20200122
  Serious: No
  Sender: FDA-Public Use
  Company Number: US-ACTELION-A-NJ2019-195213

PATIENT
  Age: 85 Year
  Sex: Female

DRUGS (1)
  1. UPTRAVI [Suspect]
     Active Substance: SELEXIPAG
     Indication: PRODUCT USED FOR UNKNOWN INDICATION
     Dosage: 1600 MCG, BID
     Route: 048

REACTIONS (3)
  - Nausea [Recovering/Resolving]
  - Otitis media [Unknown]
  - Ear tube insertion [Unknown]

NARRATIVE: CASE EVENT DATE: 201908
